FAERS Safety Report 18820789 (Version 1)
Quarter: 2021Q1

REPORT INFORMATION
  Report Type: Spontaneous
  Country: FR (occurrence: FR)
  Receive Date: 20210202
  Receipt Date: 20210202
  Transmission Date: 20210419
  Serious: Yes (Hospitalization, Other)
  Sender: FDA-Public Use
  Company Number: FR-GLAXOSMITHKLINE-FR2020EME220923

PATIENT
  Sex: Female
  Weight: 80 kg

DRUGS (2)
  1. BENLYSTA [Suspect]
     Active Substance: BELIMUMAB
     Dosage: UNK
     Route: 042
     Dates: start: 202011
  2. BENLYSTA [Suspect]
     Active Substance: BELIMUMAB
     Indication: SYSTEMIC LUPUS ERYTHEMATOSUS
     Dosage: UNK UNK, Z( /MONTH) 10 MG/KG
     Route: 042
     Dates: end: 2018

REACTIONS (10)
  - Substance abuse [Unknown]
  - Major depression [Unknown]
  - Condition aggravated [Unknown]
  - Mental disorder [Unknown]
  - Attention-seeking behaviour [Unknown]
  - Psychotic disorder [Unknown]
  - Symptom recurrence [Unknown]
  - Depression [Unknown]
  - Impulsive behaviour [Unknown]
  - Suicidal ideation [Recovering/Resolving]
